FAERS Safety Report 11432900 (Version 1)
Quarter: 2015Q3

REPORT INFORMATION
  Report Type: Spontaneous
  Country: CA (occurrence: CA)
  Receive Date: 20150828
  Receipt Date: 20150828
  Transmission Date: 20151125
  Serious: Yes (Other)
  Sender: FDA-Public Use
  Company Number: CA-009507513-1504CAN000802

PATIENT
  Age: 43 Year
  Sex: Male

DRUGS (3)
  1. INTRON A [Suspect]
     Active Substance: INTERFERON ALFA-2B
     Dosage: 2240695, 20 MIU, 3 TIMES A WEEK FOR 12 MONTHS
     Route: 048
     Dates: start: 20150421, end: 201506
  2. INTRON A [Suspect]
     Active Substance: INTERFERON ALFA-2B
     Indication: MALIGNANT MELANOMA
     Dosage: 2240693, 20 MIU, 3 TIMES A WEEK FOR 12 MONTHS
     Route: 048
     Dates: start: 20150421, end: 201506
  3. INTRON A [Suspect]
     Active Substance: INTERFERON ALFA-2B
     Dosage: 2240694, 20 MIU, 3 TIMES A WEEK FOR 12 MONTHS
     Route: 048
     Dates: start: 20150421, end: 201506

REACTIONS (5)
  - Nausea [Recovering/Resolving]
  - Seizure [Unknown]
  - Chills [Recovering/Resolving]
  - Pain [Recovering/Resolving]
  - Surgery [Unknown]

NARRATIVE: CASE EVENT DATE: 2015
